FAERS Safety Report 7353630-1 (Version None)
Quarter: 2011Q1

REPORT INFORMATION
  Report Type: 
  Country: None (occurrence: None)
  Receive Date: 20110310
  Receipt Date: 20110310
  Transmission Date: 20110831
  Serious: No
  Sender: FDA-Public Use
  Company Number: None

PATIENT
  Age: 67 Year
  Sex: Female
  Weight: 66.2252 kg

DRUGS (4)
  1. LEVAQUIN [Suspect]
     Dosage: 10 PILLS STOPPED AFTER 4
     Dates: start: 20110206
  2. LEVAQUIN [Suspect]
     Dosage: 10 PILLS STOPPED AFTER 4
     Dates: start: 20110203
  3. LEVAQUIN [Suspect]
     Dosage: 10 PILLS STOPPED AFTER 4
     Dates: start: 20110205
  4. LEVAQUIN [Suspect]
     Dosage: 10 PILLS STOPPED AFTER 4
     Dates: start: 20110204

REACTIONS (9)
  - FALL [None]
  - ASTHENIA [None]
  - NAUSEA [None]
  - MUSCULAR WEAKNESS [None]
  - CHILLS [None]
  - MYALGIA [None]
  - DIZZINESS [None]
  - PYREXIA [None]
  - HALLUCINATION [None]
